FAERS Safety Report 7353257-1 (Version None)
Quarter: 2011Q1

REPORT INFORMATION
  Report Type: 
  Country: None (occurrence: None)
  Receive Date: 20110315
  Receipt Date: 20110314
  Transmission Date: 20110831
  Serious: Yes (Hospitalization)
  Sender: FDA-Public Use
  Company Number: AT-ABBOTT-11P-009-0706350-00

PATIENT
  Age: 29 Year
  Sex: Female

DRUGS (15)
  1. ESCITALOPRAM [Suspect]
     Indication: PRODUCT USED FOR UNKNOWN INDICATION
     Dosage: 30 MG DAILY
     Dates: start: 20101103, end: 20101121
  2. SEROQUEL [Suspect]
     Dosage: 800 MG DAILY
     Dates: start: 20101214, end: 20110127
  3. TOPAMAX [Concomitant]
     Dates: start: 20101103, end: 20101104
  4. ESCITALOPRAM [Suspect]
     Dosage: 20 MG DAILY
     Dates: start: 20101207, end: 20110127
  5. SEROQUEL [Suspect]
     Indication: PRODUCT USED FOR UNKNOWN INDICATION
     Dosage: 900 MG DAILY
     Dates: start: 20101103, end: 20101105
  6. TEMESTA [Concomitant]
     Route: 048
     Dates: start: 20101202, end: 20110127
  7. TOPAMAX [Concomitant]
     Indication: PRODUCT USED FOR UNKNOWN INDICATION
     Dates: start: 20101105, end: 20101209
  8. SOLIAN [Suspect]
     Indication: PRODUCT USED FOR UNKNOWN INDICATION
     Dosage: 1200 MG DAILY
     Route: 048
     Dates: start: 20101103, end: 20101124
  9. SEROQUEL [Suspect]
     Dosage: 1000 MG DAILY
  10. TEMESTA [Concomitant]
     Indication: PRODUCT USED FOR UNKNOWN INDICATION
     Route: 048
     Dates: start: 20101103, end: 20101110
  11. ESCITALOPRAM [Suspect]
     Dosage: 15 MG DAILY
     Dates: start: 20101122, end: 20101206
  12. TEMESTA [Concomitant]
     Route: 048
     Dates: start: 20101122, end: 20101201
  13. HALDOL [Suspect]
     Indication: PRODUCT USED FOR UNKNOWN INDICATION
     Dosage: 10 MG DAILY
     Dates: start: 20101105, end: 20101119
  14. TEMESTA [Concomitant]
     Route: 048
     Dates: start: 20101111, end: 20101121
  15. KALIUM [Concomitant]
     Indication: PRODUCT USED FOR UNKNOWN INDICATION
     Dates: start: 20101103, end: 20110127

REACTIONS (3)
  - LEUKOPENIA [None]
  - GRAND MAL CONVULSION [None]
  - OVERDOSE [None]
